FAERS Safety Report 5058275-4 (Version None)
Quarter: 2006Q2

REPORT INFORMATION
  Report Type: 
  Country: None (occurrence: None)
  Receive Date: 20060622
  Receipt Date: 20060328
  Transmission Date: 20061013
  Serious: Yes (Hospitalization)
  Sender: FDA-Public Use
  Company Number: US-JNJFOC-20060201096

PATIENT
  Age: 36 Year
  Sex: Male
  Weight: 89.3586 kg

DRUGS (4)
  1. FENTANYL TRANSDERMAL SYSTEM [Suspect]
     Indication: PAIN
     Dosage: 100 UG/HR 1 IN 72 HOUR TRANSDERMAL
     Route: 062
     Dates: start: 20060123, end: 20060127
  2. ACETEC (ENALAPRIL) TABLET [Concomitant]
  3. DIOVAN [Concomitant]
  4. SOMA [Concomitant]

REACTIONS (2)
  - INAPPROPRIATE SCHEDULE OF DRUG ADMINISTRATION [None]
  - LOSS OF CONSCIOUSNESS [None]
